FAERS Safety Report 25828893 (Version 1)
Quarter: 2025Q3

REPORT INFORMATION
  Report Type: Spontaneous
  Country: US (occurrence: US)
  Receive Date: 20250922
  Receipt Date: 20250922
  Transmission Date: 20251020
  Serious: No
  Sender: ALEXION PHARMACEUTICALS
  Company Number: US-AstraZeneca-CH-00954136A

PATIENT

DRUGS (2)
  1. TRUQAP [Suspect]
     Active Substance: CAPIVASERTIB
     Indication: Breast cancer
  2. TRUQAP [Concomitant]
     Active Substance: CAPIVASERTIB

REACTIONS (1)
  - Rash [Unknown]
